FAERS Safety Report 12102430 (Version 1)
Quarter: 2016Q1

REPORT INFORMATION
  Report Type: Other
  Country: US (occurrence: US)
  Receive Date: 20160222
  Receipt Date: 20160222
  Transmission Date: 20160526
  Serious: Yes (Disabling)
  Sender: FDA-Public Use
  Company Number: US-ACORDA-ACO_112586_2015

PATIENT
  Sex: Male

DRUGS (2)
  1. AMPYRA [Suspect]
     Active Substance: DALFAMPRIDINE
     Indication: PRODUCT USED FOR UNKNOWN INDICATION
     Dosage: 10 MG, Q 12 HRS
     Route: 048
     Dates: start: 2010
  2. AMPYRA [Suspect]
     Active Substance: DALFAMPRIDINE
     Dosage: 10 MG, QAM
     Route: 048

REACTIONS (6)
  - Hemiparesis [Unknown]
  - Hemiplegia [Unknown]
  - Condition aggravated [Unknown]
  - Asthenia [Unknown]
  - Balance disorder [Unknown]
  - Inappropriate schedule of drug administration [Unknown]
